FAERS Safety Report 5207122-6 (Version None)
Quarter: 2007Q1

REPORT INFORMATION
  Report Type: 
  Country: None (occurrence: None)
  Receive Date: 20070110
  Receipt Date: 20061227
  Transmission Date: 20070707
  Serious: Yes (Hospitalization)
  Sender: FDA-Public Use
  Company Number: AZAUS200600507

PATIENT
  Age: 86 Year
  Sex: Female
  Weight: 57.1532 kg

DRUGS (3)
  1. VIDAZA [Suspect]
     Indication: MYELODYSPLASTIC SYNDROME
     Dosage: SUBCUTANEOUS
     Route: 058
     Dates: start: 20061214, end: 20061222
  2. VERAPAMIL SR (VERAPAMIL HYDROCHLORIDE) (TABLETS) [Suspect]
  3. PREDNISONE TAB [Concomitant]

REACTIONS (2)
  - CHEST PAIN [None]
  - GASTROOESOPHAGEAL REFLUX DISEASE [None]
